FAERS Safety Report 4405318-4 (Version None)
Quarter: 2004Q3

REPORT INFORMATION
  Report Type: 
  Country: None (occurrence: None)
  Receive Date: 20040715
  Receipt Date: 20040630
  Transmission Date: 20050211
  Serious: Yes (Other)
  Sender: FDA-Public Use
  Company Number: 2004-0006881

PATIENT
  Age: 26 Year
  Sex: Male
  Weight: 66 kg

DRUGS (5)
  1. TENOFOVIR DISOPROXIL FUMARATE (TENOFOVIR DISOPROXIL FUMARATE) (300 MIL [Suspect]
     Indication: HIV INFECTION
     Dosage: 300 MG, 1 IN 1 D, ORAL
     Route: 048
     Dates: start: 20031205, end: 20040606
  2. EFAVIRENZ (EFAVIRENZ) (600 MILLIGRAM) [Suspect]
     Indication: HIV INFECTION
     Dosage: SEE IMAGE
     Route: 048
     Dates: start: 20031205, end: 20040329
  3. EFAVIRENZ (EFAVIRENZ) (600 MILLIGRAM) [Suspect]
     Indication: HIV INFECTION
     Dosage: SEE IMAGE
     Route: 048
     Dates: start: 20040330, end: 20040415
  4. EFAVIRENZ (EFAVIRENZ) (600 MILLIGRAM) [Suspect]
     Indication: HIV INFECTION
     Dosage: SEE IMAGE
     Route: 048
     Dates: start: 20040415, end: 20040601
  5. EFAVIRENZ (EFAVIRENZ) (600 MILLIGRAM) [Suspect]
     Indication: HIV INFECTION
     Dosage: SEE IMAGE
     Route: 048
     Dates: start: 20040601, end: 20040629

REACTIONS (5)
  - CHOLESTASIS [None]
  - CYTOLYTIC HEPATITIS [None]
  - DISEASE RECURRENCE [None]
  - HEPATITIS [None]
  - SYPHILIS [None]
